FAERS Safety Report 10751058 (Version 1)
Quarter: 2015Q1

REPORT INFORMATION
  Report Type: Report from Study
  Country: US (occurrence: US)
  Receive Date: 20150130
  Receipt Date: 20150130
  Transmission Date: 20150721
  Serious: Yes (Hospitalization)
  Sender: FDA-Public Use
  Company Number: US-BAYER-2015-002118

PATIENT
  Age: 65 Year
  Sex: Female

DRUGS (1)
  1. NEXAVAR [Suspect]
     Active Substance: SORAFENIB
     Indication: HEPATOCELLULAR CARCINOMA
     Dosage: 200 MG, DAILY
     Route: 048
     Dates: start: 201411

REACTIONS (3)
  - Dyspnoea [None]
  - Feeling abnormal [None]
  - Oral pain [None]

NARRATIVE: CASE EVENT DATE: 20150102
